FAERS Safety Report 13486329 (Version 2)
Quarter: 2017Q2

REPORT INFORMATION
  Report Type: Report from Study
  Country: BG (occurrence: BG)
  Receive Date: 20170426
  Receipt Date: 20170515
  Transmission Date: 20170830
  Serious: Yes (Hospitalization)
  Sender: FDA-Public Use
  Company Number: BG-BAYER-2017-034436

PATIENT
  Age: 33 Year
  Sex: Female

DRUGS (6)
  1. BETAFERON [Suspect]
     Active Substance: INTERFERON BETA-1B
     Indication: RELAPSING-REMITTING MULTIPLE SCLEROSIS
     Dosage: 0.5 ML, QOD
     Route: 058
  2. CARSIL [Suspect]
     Active Substance: MILK THISTLE
     Indication: ALANINE AMINOTRANSFERASE INCREASED
  3. BETAFERON [Suspect]
     Active Substance: INTERFERON BETA-1B
     Indication: MULTIPLE SCLEROSIS
     Dosage: 1 ML, QOD
     Route: 058
     Dates: start: 20160927
  4. BETAFERON [Suspect]
     Active Substance: INTERFERON BETA-1B
     Indication: MULTIPLE SCLEROSIS
     Dosage: 0.25 ML, UNK
     Dates: start: 2017, end: 2017
  5. BETAFERON [Suspect]
     Active Substance: INTERFERON BETA-1B
     Indication: MULTIPLE SCLEROSIS
     Dosage: 0.75 ML, UNK
     Dates: start: 2017, end: 2017
  6. CARSIL [Suspect]
     Active Substance: MILK THISTLE
     Indication: ASPARTATE AMINOTRANSFERASE INCREASED
     Dosage: 2 DF, TID

REACTIONS (12)
  - Alanine aminotransferase increased [Recovering/Resolving]
  - Lymphocyte count decreased [Recovered/Resolved]
  - Drug-induced liver injury [Recovering/Resolving]
  - Hypochromic anaemia [Recovered/Resolved]
  - Rash erythematous [Recovered/Resolved]
  - Drug hypersensitivity [Recovered/Resolved]
  - Aspartate aminotransferase increased [Recovering/Resolving]
  - Haematocrit decreased [Recovered/Resolved]
  - Hepatocellular injury [Recovering/Resolving]
  - Splenomegaly [Recovering/Resolving]
  - Haemoglobin decreased [Recovered/Resolved]
  - Influenza like illness [None]

NARRATIVE: CASE EVENT DATE: 20170213
